FAERS Safety Report 20520741 (Version 1)
Quarter: 2022Q1

REPORT INFORMATION
  Report Type: Spontaneous
  Country: US (occurrence: US)
  Receive Date: 20220225
  Receipt Date: 20220225
  Transmission Date: 20220423
  Serious: No
  Sender: FDA-Public Use
  Company Number: US-PFIZER INC-2021621698

PATIENT
  Age: 44 Year
  Sex: Female

DRUGS (3)
  1. METHOTREXATE SODIUM [Suspect]
     Active Substance: METHOTREXATE SODIUM
     Dosage: WHEN NEEDED
  2. XELJANZ XR [Concomitant]
     Active Substance: TOFACITINIB CITRATE
     Dosage: UNK
     Dates: start: 20210514
  3. TRAMADOL [Concomitant]
     Active Substance: TRAMADOL
     Dosage: WHEN NEEDED

REACTIONS (2)
  - Hot flush [Unknown]
  - Iritis [Unknown]

NARRATIVE: CASE EVENT DATE: 20210518
